FAERS Safety Report 7262101-2 (Version None)
Quarter: 2011Q1

REPORT INFORMATION
  Report Type: 
  Country: None (occurrence: None)
  Receive Date: 20110130
  Receipt Date: 20101202
  Transmission Date: 20110831
  Serious: No
  Sender: FDA-Public Use
  Company Number: US-ABBOTT-10P-163-0689129-00

PATIENT
  Age: 70 Year
  Sex: Female

DRUGS (6)
  1. DARVOCET-N 100 [Concomitant]
     Indication: BREAKTHROUGH PAIN
     Dosage: 100/650MG EVERY 4-6 HOURS AS NEEDED
  2. FOLBIC [Concomitant]
     Indication: VITAMIN SUPPLEMENTATION
  3. CRESTOR [Concomitant]
     Indication: BLOOD CHOLESTEROL INCREASED
  4. MTX [Concomitant]
     Indication: RHEUMATOID ARTHRITIS
  5. HUMIRA [Suspect]
     Indication: RHEUMATOID ARTHRITIS
     Dates: start: 20101031
  6. MOBIC [Concomitant]
     Indication: OSTEOARTHRITIS

REACTIONS (2)
  - EAR INFECTION [None]
  - EAR PAIN [None]
